FAERS Safety Report 9374900 (Version 1)
Quarter: 2013Q2

REPORT INFORMATION
  Report Type: Report from Study
  Country: US (occurrence: US)
  Receive Date: 20130628
  Receipt Date: 20130628
  Transmission Date: 20140414
  Serious: Yes (Other)
  Sender: FDA-Public Use
  Company Number: US-ROCHE-1240161

PATIENT
  Age: 58 Year
  Sex: Female

DRUGS (2)
  1. LUCENTIS [Suspect]
     Indication: PRODUCT USED FOR UNKNOWN INDICATION
     Dosage: LEFT EYE
     Route: 050
  2. AVASTIN [Suspect]
     Indication: PRODUCT USED FOR UNKNOWN INDICATION
     Dosage: RIGHT EYE
     Route: 050

REACTIONS (10)
  - Retinal aneurysm [Unknown]
  - Retinal disorder [Unknown]
  - Cataract nuclear [Unknown]
  - Retinal haemorrhage [Unknown]
  - Chorioretinal atrophy [Unknown]
  - Optic nerve disorder [Unknown]
  - Chorioretinal atrophy [Unknown]
  - Scar [Unknown]
  - Vitreous floaters [Unknown]
  - Retinal scar [Unknown]
